FAERS Safety Report 19415783 (Version 1)
Quarter: 2021Q2

REPORT INFORMATION
  Report Type: Spontaneous
  Country: US (occurrence: US)
  Receive Date: 20210615
  Receipt Date: 20210615
  Transmission Date: 20210717
  Serious: No
  Sender: FDA-Public Use
  Company Number: US-ALLERGAN-2035322US

PATIENT
  Sex: Female

DRUGS (1)
  1. KYBELLA [Suspect]
     Active Substance: DEOXYCHOLIC ACID
     Indication: LIPOLYSIS PROCEDURE
     Dosage: 2 VIALS, SINGLE
     Route: 058
     Dates: start: 20200828, end: 20200828

REACTIONS (3)
  - Swelling [Not Recovered/Not Resolved]
  - Therapeutic response decreased [Unknown]
  - Contusion [Not Recovered/Not Resolved]
